FAERS Safety Report 21195402 (Version 1)
Quarter: 2022Q3

REPORT INFORMATION
  Report Type: Other
  Country: None (occurrence: MX)
  Receive Date: 20220810
  Receipt Date: 20220810
  Transmission Date: 20221026
  Serious: Yes (Other)
  Sender: FDA-Public Use
  Company Number: MX-B.Braun Medical Inc.-2131683

PATIENT
  Age: 5 Year
  Sex: Female

DRUGS (1)
  1. LIDOCAINE HYDROCHLORIDE AND DEXTROSE [Suspect]
     Active Substance: DEXTROSE\LIDOCAINE HYDROCHLORIDE

REACTIONS (1)
  - Drug ineffective [Unknown]
